FAERS Safety Report 7329518-9 (Version None)
Quarter: 2011Q1

REPORT INFORMATION
  Report Type: 
  Country: None (occurrence: None)
  Receive Date: 20110303
  Receipt Date: 20110225
  Transmission Date: 20110831
  Serious: Yes (Death)
  Sender: FDA-Public Use
  Company Number: PHHY2010JP77362

PATIENT
  Sex: Female

DRUGS (3)
  1. ZYLORIC [Concomitant]
     Dosage: 100 MG
     Route: 048
     Dates: start: 20100223, end: 20100604
  2. EXJADE [Suspect]
     Indication: MYELOFIBROSIS
     Dosage: 500 MG, DAILY
     Route: 048
     Dates: start: 20100223, end: 20100904
  3. LASIX [Concomitant]
     Indication: MYELOFIBROSIS
     Dosage: 40 MG
     Route: 048
     Dates: start: 20100604, end: 20100902

REACTIONS (1)
  - INTRA-ABDOMINAL HAEMORRHAGE [None]
